FAERS Safety Report 7805519-9 (Version None)
Quarter: 2011Q4

REPORT INFORMATION
  Report Type: 
  Country: None (occurrence: None)
  Receive Date: 20111010
  Receipt Date: 20110926
  Transmission Date: 20120403
  Serious: Yes (Hospitalization)
  Sender: FDA-Public Use
  Company Number: PHHY2011US85885

PATIENT
  Age: 21 Year
  Sex: Female

DRUGS (8)
  1. ALLOPURINOL [Suspect]
     Indication: URINARY TRACT INFECTION
     Dosage: UNK UKN, UNK
  2. AMOXICILLIN [Suspect]
     Indication: PRURITUS
     Dosage: UNK UKN, UNK
  3. CLAVULANATE POTASSIUM [Suspect]
     Indication: PRURITUS
     Dosage: UNK UKN, UNK
  4. CIPROFLOXACIN [Suspect]
     Indication: URINARY TRACT INFECTION
     Dosage: UNK UKN, UNK
  5. DIPHENHYDRAMINE HCL [Suspect]
     Indication: PRURITUS
     Dosage: UNK UKN, UNK
  6. MELOXICAM [Suspect]
     Indication: VULVOVAGINAL MYCOTIC INFECTION
     Dosage: UNK UKN, UNK
  7. MICONAZOLE [Suspect]
     Indication: VULVOVAGINAL MYCOTIC INFECTION
     Dosage: UNK UKN, UNK
  8. TOBRAMYCIN [Suspect]
     Indication: VULVOVAGINAL MYCOTIC INFECTION
     Dosage: UNK UKN, UNK

REACTIONS (14)
  - DECREASED APPETITE [None]
  - CONJUNCTIVAL HYPERAEMIA [None]
  - PRODUCTIVE COUGH [None]
  - APHAGIA [None]
  - TACHYCARDIA [None]
  - ARTHRALGIA [None]
  - VAGINAL EROSION [None]
  - COOMBS POSITIVE HAEMOLYTIC ANAEMIA [None]
  - HAEMOPTYSIS [None]
  - TOXIC EPIDERMAL NECROLYSIS [None]
  - VOMITING [None]
  - PYREXIA [None]
  - RASH [None]
  - TACHYPNOEA [None]
